FAERS Safety Report 7617753-1 (Version None)
Quarter: 2011Q3

REPORT INFORMATION
  Report Type: 
  Country: None (occurrence: None)
  Receive Date: 20110718
  Receipt Date: 20110707
  Transmission Date: 20111222
  Serious: Yes (Other)
  Sender: FDA-Public Use
  Company Number: US-JNJFOC-20110704800

PATIENT
  Age: 61 Year
  Sex: Female

DRUGS (11)
  1. TYLENOL-500 [Suspect]
     Route: 065
  2. DARVOCET-N 50 [Concomitant]
     Indication: PAIN
     Route: 065
  3. ACETYLSALICYLIC ACID SRT [Concomitant]
     Route: 065
  4. CODEINE SULFATE [Concomitant]
     Route: 065
  5. FUROSEMIDE [Concomitant]
     Route: 065
  6. CIPROFLOXACIN [Concomitant]
     Indication: PAIN
     Route: 065
  7. ASCORBIC ACID [Concomitant]
     Route: 065
  8. LYRICA [Concomitant]
     Indication: HYPOAESTHESIA
     Route: 065
     Dates: start: 20071101
  9. VICODIN [Concomitant]
     Indication: PAIN
     Route: 065
  10. KEFLEX [Concomitant]
     Route: 065
  11. TYLENOL-500 [Suspect]
     Indication: ANALGESIC THERAPY
     Route: 065

REACTIONS (5)
  - WEIGHT DECREASED [None]
  - ALOPECIA [None]
  - DEPRESSION [None]
  - NAUSEA [None]
  - EATING DISORDER [None]
